FAERS Safety Report 4919499-7 (Version None)
Quarter: 2006Q1

REPORT INFORMATION
  Report Type: 
  Country: None (occurrence: None)
  Receive Date: 20060222
  Receipt Date: 20051108
  Transmission Date: 20060701
  Serious: Yes (Death, Hospitalization)
  Sender: FDA-Public Use
  Company Number: US-MERCK-0511USA01600

PATIENT
  Age: 76 Year
  Sex: Female

DRUGS (19)
  1. VIOXX [Suspect]
     Indication: ARTHRITIS
     Route: 048
     Dates: start: 20000601, end: 20031001
  2. HYDROCODONE HYDROCHLORIDE [Concomitant]
     Indication: ARTHRITIS
     Route: 065
     Dates: start: 20000101, end: 20010901
  3. OXYCODONE [Concomitant]
     Indication: ARTHRITIS
     Route: 065
     Dates: start: 20000301, end: 20010801
  4. WARFARIN [Concomitant]
     Indication: THROMBOSIS
     Route: 065
     Dates: start: 20000101, end: 20031001
  5. WARFARIN [Concomitant]
     Indication: DEEP VEIN THROMBOSIS
     Route: 065
     Dates: start: 20000101, end: 20031001
  6. SPIRONOLACTONE [Concomitant]
     Indication: HYPERTENSION
     Route: 065
     Dates: start: 20000201, end: 20031001
  7. ZAROXOLYN [Concomitant]
     Indication: HYPERTENSION
     Route: 065
     Dates: start: 20000201, end: 20031001
  8. BIAXIN [Concomitant]
     Indication: GASTRIC DISORDER
     Route: 065
  9. DICYCLOMINE HYDROCHLORIDE [Concomitant]
     Indication: GASTRIC DISORDER
     Route: 065
  10. ENULOSE [Concomitant]
     Indication: GASTRIC DISORDER
     Route: 065
  11. HYOSCYAMINE [Concomitant]
     Indication: GASTRIC DISORDER
     Route: 065
  12. NEXIUM [Concomitant]
     Indication: GASTRIC DISORDER
     Route: 065
  13. PROTONIX [Concomitant]
     Indication: GASTRIC DISORDER
     Route: 065
  14. CLARITIN [Concomitant]
     Indication: HYPERSENSITIVITY
     Route: 065
  15. ALLEGRA [Concomitant]
     Indication: HYPERSENSITIVITY
     Route: 065
  16. BUMETANIDE [Concomitant]
     Indication: HYPERTENSION
     Route: 065
  17. GUAIFENESIN [Concomitant]
     Route: 065
  18. MECLIZINE [Concomitant]
     Route: 065
  19. [THERAPY UNSPECIFIED] [Concomitant]
     Route: 065

REACTIONS (8)
  - BLOOD CHOLESTEROL INCREASED [None]
  - CARDIAC FAILURE CONGESTIVE [None]
  - CHEST PAIN [None]
  - GASTRIC DISORDER [None]
  - HYPERKALAEMIA [None]
  - MYOCARDIAL INFARCTION [None]
  - RESPIRATORY FAILURE [None]
  - SEPTIC SHOCK [None]
